FAERS Safety Report 6519810-X (Version None)
Quarter: 2009Q4

REPORT INFORMATION
  Report Type: 
  Country: None (occurrence: None)
  Receive Date: 20091228
  Receipt Date: 20091228
  Transmission Date: 20100525
  Serious: Yes (Other)
  Sender: FDA-Public Use
  Company Number: None

PATIENT
  Age: 38 Year
  Sex: Male
  Weight: 81.6475 kg

DRUGS (2)
  1. BUPROPION HCL [Suspect]
     Indication: DEPRESSION
     Dosage: 1 TABLET ONCE DAILY PO
     Route: 048
     Dates: start: 20091203, end: 20091224
  2. BUPROPION HCL [Suspect]
     Indication: IRRITABILITY
     Dosage: 1 TABLET ONCE DAILY PO
     Route: 048
     Dates: start: 20091203, end: 20091224

REACTIONS (7)
  - AGITATION [None]
  - APATHY [None]
  - DISTURBANCE IN ATTENTION [None]
  - INCREASED APPETITE [None]
  - IRRITABILITY [None]
  - PRODUCT MEASURED POTENCY ISSUE [None]
  - PRODUCT QUALITY ISSUE [None]
